FAERS Safety Report 15797830 (Version 1)
Quarter: 2018Q4

REPORT INFORMATION
  Report Type: Spontaneous
  Country: US (occurrence: US)
  Receive Date: 20181213
  Receipt Date: 20181213
  Transmission Date: 20190205
  Serious: No
  Sender: FDA-Public Use
  Company Number: None

PATIENT
  Age: 49 Year
  Sex: Female

DRUGS (1)
  1. TALTZ [Suspect]
     Active Substance: IXEKIZUMAB
     Indication: PSORIATIC ARTHROPATHY
     Dates: start: 201811

REACTIONS (4)
  - Lip pain [None]
  - Injection site erythema [None]
  - Lip dry [None]
  - Injection site swelling [None]

NARRATIVE: CASE EVENT DATE: 20181212
